FAERS Safety Report 16271799 (Version 1)
Quarter: 2019Q2

REPORT INFORMATION
  Report Type: Spontaneous
  Country: CN (occurrence: CN)
  Receive Date: 20190503
  Receipt Date: 20190503
  Transmission Date: 20190711
  Serious: Yes (Other)
  Sender: FDA-Public Use
  Company Number: CN-BAUSCH-BL-2019-012317

PATIENT
  Age: 56 Year
  Sex: Female

DRUGS (8)
  1. MESALAZINE [Suspect]
     Active Substance: MESALAMINE
     Route: 065
     Dates: start: 2018
  2. MESALAZINE [Suspect]
     Active Substance: MESALAMINE
     Indication: COLITIS ULCERATIVE
     Dosage: DAILY FOR ABOUT 1 MONTH
     Route: 065
  3. MESALAZINE [Suspect]
     Active Substance: MESALAMINE
     Route: 048
  4. MEROPENEM. [Concomitant]
     Active Substance: MEROPENEM
     Indication: EVIDENCE BASED TREATMENT
  5. TINIDAZOLE. [Concomitant]
     Active Substance: TINIDAZOLE
     Indication: EVIDENCE BASED TREATMENT
  6. MESALAZINE [Suspect]
     Active Substance: MESALAMINE
     Dosage: 0.5 G FOR RECTAL ADMINISTRATION EVERY NIGHT WERE ADDED
     Route: 054
  7. GANCICLOVIR. [Concomitant]
     Active Substance: GANCICLOVIR
     Indication: CYTOMEGALOVIRUS COLITIS
     Dosage: FULL-DOSE
     Route: 042
  8. MESALAZINE [Suspect]
     Active Substance: MESALAMINE
     Indication: COLITIS ULCERATIVE
     Route: 065

REACTIONS (3)
  - Colitis ulcerative [Unknown]
  - Disease recurrence [Unknown]
  - Treatment noncompliance [Unknown]
